FAERS Safety Report 6657898-6 (Version None)
Quarter: 2010Q1

REPORT INFORMATION
  Report Type: 
  Country: None (occurrence: None)
  Receive Date: 20100330
  Receipt Date: 20100322
  Transmission Date: 20100710
  Serious: Yes (Hospitalization)
  Sender: FDA-Public Use
  Company Number: FR-ROCHE-692771

PATIENT
  Age: 56 Year
  Sex: Female

DRUGS (9)
  1. TAMIFLU [Suspect]
     Indication: INFLUENZA
     Route: 048
     Dates: start: 20091228, end: 20100101
  2. AMOXICILLIN [Suspect]
     Indication: SUPERINFECTION
     Dosage: DRUG REPORTED AS: AMOXICILLINE BASE
     Route: 048
     Dates: start: 20091228, end: 20100101
  3. LEVOTHYROX [Concomitant]
  4. NEXIUM [Concomitant]
  5. ATENOLOL [Concomitant]
  6. FONZYLANE [Concomitant]
  7. LORAZEPAM [Concomitant]
  8. THERALENE [Concomitant]
  9. MEPRONIZINE [Concomitant]

REACTIONS (2)
  - HEPATITIS [None]
  - RENAL FAILURE ACUTE [None]
